FAERS Safety Report 23491271 (Version 1)
Quarter: 2024Q1

REPORT INFORMATION
  Report Type: Report from Study
  Country: CA (occurrence: CA)
  Receive Date: 20240207
  Receipt Date: 20240207
  Transmission Date: 20240409
  Serious: Yes (Hospitalization)
  Sender: FDA-Public Use
  Company Number: CA-ABBVIE-5622171

PATIENT
  Age: 82 Year
  Sex: Female

DRUGS (1)
  1. RINVOQ [Suspect]
     Active Substance: UPADACITINIB
     Indication: Ankylosing spondylitis
     Route: 048
     Dates: start: 20231219

REACTIONS (3)
  - Gastrointestinal disorder [Unknown]
  - Hypertension [Unknown]
  - Malaise [Unknown]

NARRATIVE: CASE EVENT DATE: 20240101
